FAERS Safety Report 5087381-3 (Version None)
Quarter: 2006Q3

REPORT INFORMATION
  Report Type: 
  Country: None (occurrence: None)
  Receive Date: 20060824
  Receipt Date: 20060817
  Transmission Date: 20061208
  Serious: Yes (Other)
  Sender: FDA-Public Use
  Company Number: JP-JNJFOC-20060205019

PATIENT
  Sex: Male
  Weight: 54 kg

DRUGS (17)
  1. REMICADE [Suspect]
     Route: 042
  2. REMICADE [Suspect]
     Route: 042
  3. REMICADE [Suspect]
     Route: 042
  4. REMICADE [Suspect]
     Dosage: 3 MG/KG
     Route: 042
  5. REMICADE [Suspect]
     Indication: RHEUMATOID ARTHRITIS
     Dosage: 3 MG/KG
     Route: 042
  6. NOVORAPID [Suspect]
     Indication: DIABETES MELLITUS
     Route: 058
  7. LANTUS [Suspect]
     Indication: DIABETES MELLITUS
     Route: 058
  8. AZELNIDIPINE [Concomitant]
     Route: 048
  9. VOLTAREN [Concomitant]
     Indication: RHEUMATOID ARTHRITIS
     Dosage: ROUTE=^PR^
     Route: 054
  10. OMEPRAZOLE [Concomitant]
     Route: 048
  11. ONEALFA [Concomitant]
     Route: 048
  12. PREDONINE [Concomitant]
  13. RHEUMATREX [Concomitant]
     Route: 048
  14. RHEUMATREX [Concomitant]
     Route: 048
  15. RHEUMATREX [Concomitant]
     Indication: RHEUMATOID ARTHRITIS
     Route: 048
  16. FOLIAMIN [Concomitant]
     Route: 048
  17. CYANOCOBALAMIN [Concomitant]
     Route: 048

REACTIONS (1)
  - HYPOGLYCAEMIA [None]
